FAERS Safety Report 23205818 (Version 1)
Quarter: 2023Q4

REPORT INFORMATION
  Report Type: Spontaneous
  Country: US (occurrence: US)
  Receive Date: 20231120
  Receipt Date: 20231120
  Transmission Date: 20240109
  Serious: Yes (Life-Threatening, Hospitalization, Other)
  Sender: FDA-Public Use
  Company Number: US-PFIZER INC-PV202300185494

PATIENT
  Age: 76 Year
  Sex: Female

DRUGS (2)
  1. GLIPIZIDE [Suspect]
     Active Substance: GLIPIZIDE
     Indication: Type 2 diabetes mellitus
     Dosage: 10 MG, DAILY
  2. GLIPIZIDE [Suspect]
     Active Substance: GLIPIZIDE
     Dosage: 5 MG (IN THE ED)

REACTIONS (2)
  - Hypoglycaemia [Recovering/Resolving]
  - Toxicity to various agents [Recovering/Resolving]
